FAERS Safety Report 23555664 (Version 1)
Quarter: 2024Q1

REPORT INFORMATION
  Report Type: Spontaneous
  Country: US (occurrence: US)
  Receive Date: 20240222
  Receipt Date: 20240222
  Transmission Date: 20240410
  Serious: Yes (Hospitalization, Other)
  Sender: FDA-Public Use
  Company Number: US-GILEAD-2024-0663041

PATIENT
  Age: 60 Year

DRUGS (2)
  1. LENACAPAVIR [Suspect]
     Active Substance: LENACAPAVIR
     Indication: HIV infection
     Dosage: UNK
     Route: 065
     Dates: start: 202303, end: 20240123
  2. TROGARZO [Concomitant]
     Active Substance: IBALIZUMAB-UIYK
     Dosage: UNK
     Route: 042
     Dates: start: 202303

REACTIONS (2)
  - Middle cerebral artery stroke [Unknown]
  - Deep vein thrombosis [Unknown]

NARRATIVE: CASE EVENT DATE: 20230614
